FAERS Safety Report 19919493 (Version 2)
Quarter: 2021Q4

REPORT INFORMATION
  Report Type: Spontaneous
  Country: DE (occurrence: DE)
  Receive Date: 20211005
  Receipt Date: 20211011
  Transmission Date: 20220303
  Serious: Yes (Congenital Anomaly, Other)
  Sender: FDA-Public Use
  Company Number: DE-GRANULES-DE-2021GRALIT00499

PATIENT
  Sex: Male

DRUGS (1)
  1. NAPROXEN SODIUM [Suspect]
     Active Substance: NAPROXEN SODIUM
     Indication: Foetal exposure during pregnancy
     Route: 064

REACTIONS (4)
  - Limb malformation [Unknown]
  - Haemangioma [Unknown]
  - Umbilical hernia [Unknown]
  - Foetal exposure during pregnancy [Unknown]
